FAERS Safety Report 25267872 (Version 2)
Quarter: 2025Q2

REPORT INFORMATION
  Report Type: Report from Study
  Country: CA (occurrence: CA)
  Receive Date: 20250505
  Receipt Date: 20250623
  Transmission Date: 20250717
  Serious: Yes (Other)
  Sender: TEVA
  Company Number: CA-TEVA-VS-3215806

PATIENT
  Age: 33 Year
  Sex: Female

DRUGS (3)
  1. AJOVY [Suspect]
     Active Substance: FREMANEZUMAB-VFRM
     Indication: Migraine prophylaxis
     Dosage: LAST DOSE ADMINISTERED DATE 2025-06-08
     Route: 058
     Dates: start: 20240505
  2. ZOLMITRIPTAN [Concomitant]
     Active Substance: ZOLMITRIPTAN
  3. PROPRANOLOL [Concomitant]
     Active Substance: PROPRANOLOL HYDROCHLORIDE
     Indication: Product used for unknown indication
     Dates: end: 2025

REACTIONS (5)
  - Rash erythematous [Not Recovered/Not Resolved]
  - Inappropriate schedule of product administration [Unknown]
  - Rash pruritic [Unknown]
  - Injection site rash [Unknown]
  - Burning sensation [Unknown]

NARRATIVE: CASE EVENT DATE: 20240101
